FAERS Safety Report 5148225-4 (Version None)
Quarter: 2006Q4

REPORT INFORMATION
  Report Type: 
  Country: None (occurrence: None)
  Receive Date: 20061110
  Receipt Date: 20060714
  Transmission Date: 20070319
  Serious: Yes (Life-Threatening, Hospitalization)
  Sender: FDA-Public Use
  Company Number: JP-BOEHRINGER INGELHEIM PHARMACEUTICALS, INC.-2006-BP-08215NB

PATIENT
  Sex: Male

DRUGS (5)
  1. MOBIC [Suspect]
     Indication: GOUT
     Route: 048
     Dates: start: 20060524, end: 20060614
  2. MOBIC [Suspect]
     Indication: HYPERURICAEMIA
  3. LANSOPRAZOLE [Suspect]
     Indication: GASTRITIS
     Route: 048
     Dates: start: 20060601, end: 20060614
  4. ALLOPURINOL [Suspect]
     Indication: GOUT
     Route: 048
     Dates: start: 20060524, end: 20060614
  5. ALLOPURINOL [Suspect]
     Indication: HYPERURICAEMIA

REACTIONS (3)
  - HYPOXIA [None]
  - INTERSTITIAL LUNG DISEASE [None]
  - LYMPHOCYTE STIMULATION TEST POSITIVE [None]
